FAERS Safety Report 8153853-8 (Version None)
Quarter: 2012Q1

REPORT INFORMATION
  Report Type: 
  Country: None (occurrence: None)
  Receive Date: 20120221
  Receipt Date: 20120210
  Transmission Date: 20120608
  Serious: Yes (Other)
  Sender: FDA-Public Use
  Company Number: JP-ELI_LILLY_AND_COMPANY-JP201112002753

PATIENT
  Age: 65 Year
  Sex: Female

DRUGS (1)
  1. FORTEO [Suspect]
     Dosage: UNK
     Route: 058
     Dates: start: 20110809

REACTIONS (6)
  - ANAEMIA [None]
  - CONTUSION [None]
  - WEIGHT DECREASED [None]
  - DECREASED APPETITE [None]
  - BLOOD PRESSURE DECREASED [None]
  - WRIST FRACTURE [None]
